FAERS Safety Report 7074853-5 (Version None)
Quarter: 2010Q4

REPORT INFORMATION
  Report Type: 
  Country: None (occurrence: None)
  Receive Date: 20101029
  Receipt Date: 20101018
  Transmission Date: 20110411
  Serious: Yes (Disabling)
  Sender: FDA-Public Use
  Company Number: SI-GENENTECH-308572

PATIENT
  Age: 58 Year
  Sex: Female

DRUGS (10)
  1. MABTHERA [Suspect]
     Indication: B-CELL LYMPHOMA
     Dosage: UNK
     Route: 042
  2. MABTHERA [Suspect]
     Dosage: UNK
     Route: 042
     Dates: start: 20070701, end: 20080201
  3. MABTHERA [Suspect]
     Dosage: 375 MG/M2, Q3M
     Route: 042
     Dates: end: 20100501
  4. CYCLOPHOSPHAMIDE [Concomitant]
     Dosage: UNK
  5. CYCLOPHOSPHAMIDE [Concomitant]
     Dosage: 250 MG/M2, UNK
     Dates: start: 20070701, end: 20080201
  6. DOXORUBICIN HCL [Concomitant]
     Dosage: UNK
  7. VINCRISTINE [Concomitant]
     Dosage: UNK
  8. PREDNISOLONE [Concomitant]
     Dosage: UNK
  9. FLUDARABINE PHOSPHATE [Concomitant]
     Dosage: 25 MG/M2, UNK
     Dates: start: 20070701, end: 20080201
  10. CHLORAMBUCIL [Concomitant]
     Indication: B-CELL LYMPHOMA
     Dosage: UNK

REACTIONS (4)
  - BLINDNESS [None]
  - BONE PAIN [None]
  - INFECTION [None]
  - MUSCLE SPASMS [None]
